FAERS Safety Report 9091612 (Version 2)
Quarter: 2013Q1

REPORT INFORMATION
  Report Type: Spontaneous
  Country: IT (occurrence: IT)
  Receive Date: 20130131
  Receipt Date: 20130305
  Transmission Date: 20140127
  Serious: Yes (Other)
  Sender: FDA-Public Use
  Company Number: IT-SANOFI-AVENTIS-2013SA005628

PATIENT
  Age: 83 Year
  Sex: Female

DRUGS (5)
  1. LASIX [Suspect]
     Indication: HYPERTENSION
     Route: 048
     Dates: start: 20111221, end: 20121220
  2. ENAPREN [Suspect]
     Indication: HYPERTENSION
     Route: 048
     Dates: start: 20111221, end: 20121220
  3. LANSOPRAZOLE [Concomitant]
  4. ZOLOFT [Concomitant]
     Dosage: STRENGTH: 50 MG
  5. CARDIOASPIRIN [Concomitant]
     Dosage: STRENGTH: 100 MG

REACTIONS (1)
  - Syncope [Recovering/Resolving]
